FAERS Safety Report 7001600-5 (Version None)
Quarter: 2010Q3

REPORT INFORMATION
  Report Type: 
  Country: None (occurrence: None)
  Receive Date: 20100917
  Receipt Date: 20100917
  Transmission Date: 20110219
  Serious: Yes (Hospitalization)
  Sender: FDA-Public Use
  Company Number: None

PATIENT
  Age: 63 Year
  Sex: Male
  Weight: 108 kg

DRUGS (4)
  1. TRIMETHOPRIM + SULFAMETHOXAZOLE [Suspect]
     Indication: SINUSITIS
     Dosage: 800/160 PO BID
     Route: 048
     Dates: start: 20100521, end: 20100526
  2. HYDROCHLOROTHIAZIDE [Concomitant]
  3. LIPITOR [Concomitant]
  4. LISINOPRIL [Concomitant]

REACTIONS (5)
  - HYPOTENSION [None]
  - PYREXIA [None]
  - RASH [None]
  - STEVENS-JOHNSON SYNDROME [None]
  - TOXIC EPIDERMAL NECROLYSIS [None]
